FAERS Safety Report 11158377 (Version 2)
Quarter: 2015Q2

REPORT INFORMATION
  Report Type: Spontaneous
  Country: DE (occurrence: DE)
  Receive Date: 20150603
  Receipt Date: 20150629
  Transmission Date: 20150821
  Serious: Yes (Other)
  Sender: FDA-Public Use
  Company Number: DE-ASTELLAS-2015EU006294

PATIENT
  Sex: Female
  Weight: 65 kg

DRUGS (6)
  1. ASPIRIN C [Concomitant]
     Indication: PYREXIA
     Dosage: UNK UNK, UNKNOWN FREQ.(SHORT-TERM)
     Route: 048
     Dates: start: 201503
  2. MAILATON [Concomitant]
     Indication: HORMONE THERAPY
     Dosage: UNK, CONTINUOUS
     Route: 048
  3. HOGGAR NIGHT TABLETS [Concomitant]
     Indication: SLEEP DISORDER
     Dosage: UNK, UNKNOWN FREQ. (SHORT-TERM)
     Route: 048
     Dates: start: 201503
  4. FLOTIRAN [Concomitant]
     Indication: FUNGAL INFECTION
     Dosage: UNK, UNKNOWN FREQ. (SHORT-TERM)
     Route: 003
     Dates: start: 201505
  5. DESLORATADIN [Concomitant]
     Indication: HYPERSENSITIVITY
     Dosage: UNK, UNKNOWN FREQ. (SHORT-TERM)
     Route: 048
     Dates: start: 201505
  6. VESIKUR [Suspect]
     Active Substance: SOLIFENACIN SUCCINATE
     Indication: URGE INCONTINENCE
     Dosage: 5 MG, DAILY
     Route: 048
     Dates: start: 20141121, end: 201504

REACTIONS (4)
  - Oedema peripheral [Recovering/Resolving]
  - Pruritus [Recovering/Resolving]
  - Dry skin [Recovering/Resolving]
  - Rash [Unknown]

NARRATIVE: CASE EVENT DATE: 201411
